FAERS Safety Report 17745549 (Version 1)
Quarter: 2020Q2

REPORT INFORMATION
  Report Type: Spontaneous
  Country: FR (occurrence: FR)
  Receive Date: 20200505
  Receipt Date: 20200505
  Transmission Date: 20200714
  Serious: Yes (Hospitalization, Other)
  Sender: FDA-Public Use
  Company Number: NVSC2020FR121473

PATIENT
  Age: 60 Year
  Sex: Female

DRUGS (8)
  1. TICAGRELOR. [Suspect]
     Active Substance: TICAGRELOR
     Dosage: 180 MG, QD
     Route: 065
  2. CANGRELOR [Suspect]
     Active Substance: CANGRELOR
     Indication: THROMBOSIS PROPHYLAXIS
     Dosage: 180 MG (LOADING DOSE)
     Route: 065
  3. ACETYLSALICYLIC ACID [Suspect]
     Active Substance: ASPIRIN
     Indication: THROMBOSIS PROPHYLAXIS
     Dosage: 75 MG, QD (LOADING DOSE)
     Route: 065
  4. ACETYLSALICYLIC ACID [Suspect]
     Active Substance: ASPIRIN
     Dosage: 150 MG
     Route: 065
  5. ACETAMINOPHEN (PARACETAMOL) [Suspect]
     Active Substance: ACETAMINOPHEN
     Indication: THROMBOANGIITIS OBLITERANS
     Dosage: UNK, QD
     Route: 065
  6. TICAGRELOR. [Suspect]
     Active Substance: TICAGRELOR
     Indication: THROMBOSIS PROPHYLAXIS
     Dosage: 90 MG
     Route: 065
  7. INTEGRILIN [Suspect]
     Active Substance: EPTIFIBATIDE
     Indication: THROMBOSIS PROPHYLAXIS
     Dosage: UNK
     Route: 042
  8. TICAGRELOR. [Suspect]
     Active Substance: TICAGRELOR
     Dosage: 180 MG, QD
     Route: 065

REACTIONS (4)
  - Drug abuse [Unknown]
  - Drug ineffective [Unknown]
  - Intracranial aneurysm [Unknown]
  - Headache [Unknown]
